FAERS Safety Report 25653514 (Version 1)
Quarter: 2025Q3

REPORT INFORMATION
  Report Type: Spontaneous
  Country: KR (occurrence: KR)
  Receive Date: 20250807
  Receipt Date: 20250807
  Transmission Date: 20251021
  Serious: Yes (Life-Threatening)
  Sender: ORGANON
  Company Number: KR-ORGANON-O2508KOR000439

PATIENT
  Age: 31 Year
  Sex: Female

DRUGS (1)
  1. SINGULAIR [Suspect]
     Active Substance: MONTELUKAST SODIUM

REACTIONS (2)
  - Suicidal ideation [Unknown]
  - Sleep disorder [Unknown]
